FAERS Safety Report 4994162-5 (Version None)
Quarter: 2006Q2

REPORT INFORMATION
  Report Type: 
  Country: None (occurrence: None)
  Receive Date: 20060503
  Receipt Date: 20060424
  Transmission Date: 20061013
  Serious: Yes (Death, Hospitalization)
  Sender: FDA-Public Use
  Company Number: 2005EU000551

PATIENT
  Age: 51 Year
  Sex: Male

DRUGS (4)
  1. PROGRAF [Suspect]
     Indication: LIVER TRANSPLANT
     Dosage: D
  2. PREDNISONE TAB [Suspect]
     Indication: LIVER TRANSPLANT
     Dosage: D, ORAL; 40.00 MG, UID/QD, ORAL
     Route: 048
     Dates: end: 20041201
  3. PREDNISONE TAB [Suspect]
     Indication: LIVER TRANSPLANT
     Dosage: D, ORAL; 40.00 MG, UID/QD, ORAL
     Route: 048
     Dates: start: 20041201
  4. ROCEPHIN [Suspect]
     Indication: NOCARDIOSIS
     Dosage: D, IV NOS
     Route: 042

REACTIONS (33)
  - ACUTE LEFT VENTRICULAR FAILURE [None]
  - ASPERGILLOSIS [None]
  - BONE MARROW FAILURE [None]
  - CANDIDA SEPSIS [None]
  - CARDIAC FAILURE [None]
  - CARDIOTOXICITY [None]
  - CELLULITIS [None]
  - CENTRAL NERVOUS SYSTEM INFECTION [None]
  - CONGESTIVE CARDIOMYOPATHY [None]
  - CONVULSION [None]
  - CYTOMEGALOVIRUS TEST POSITIVE [None]
  - DEPRESSED LEVEL OF CONSCIOUSNESS [None]
  - GRAFT VERSUS HOST DISEASE [None]
  - HAEMOLYTIC ANAEMIA [None]
  - HYPOXIA [None]
  - LUNG DISORDER [None]
  - LYMPHANGITIS [None]
  - MALNUTRITION [None]
  - MITRAL VALVE INCOMPETENCE [None]
  - MYOCARDIAL INFARCTION [None]
  - MYOCARDITIS [None]
  - NOCARDIOSIS [None]
  - NOSOCOMIAL INFECTION [None]
  - OVERDOSE [None]
  - PANCYTOPENIA [None]
  - PERICARDIAL EFFUSION [None]
  - PERITONEAL EFFUSION [None]
  - PLEURAL EFFUSION [None]
  - POST PROCEDURAL COMPLICATION [None]
  - PULMONARY OEDEMA [None]
  - RENAL FAILURE ACUTE [None]
  - SKIN INFECTION [None]
  - TOXIC SKIN ERUPTION [None]
